FAERS Safety Report 4841395-4 (Version None)
Quarter: 2005Q4

REPORT INFORMATION
  Report Type: 
  Country: None (occurrence: None)
  Receive Date: 20051130
  Receipt Date: 20050824
  Transmission Date: 20060501
  Serious: Yes (Hospitalization)
  Sender: FDA-Public Use
  Company Number: US-MERCK-0508USA04346

PATIENT
  Age: 55 Year
  Sex: Female
  Weight: 77 kg

DRUGS (10)
  1. VIOXX [Suspect]
     Indication: ARTHRITIS
     Route: 048
     Dates: start: 20000701
  2. VIOXX [Suspect]
     Route: 048
     Dates: end: 20030101
  3. ALTACE [Concomitant]
     Route: 065
     Dates: start: 20000701, end: 20030425
  4. NAPROXEN [Concomitant]
     Route: 065
  5. PREVACID [Concomitant]
     Route: 065
  6. DARVOCET-N 100 [Concomitant]
     Route: 065
  7. HYDRODIURIL [Concomitant]
     Route: 065
  8. PHENERGAN [Concomitant]
     Route: 065
  9. ACCUPRIL [Concomitant]
     Route: 065
     Dates: start: 20000701, end: 20030425
  10. MONOPRIL [Concomitant]
     Route: 065
     Dates: start: 20000701, end: 20030425

REACTIONS (19)
  - ACUTE MYOCARDIAL INFARCTION [None]
  - ANAEMIA [None]
  - ANGINA UNSTABLE [None]
  - BLOOD AMYLASE INCREASED [None]
  - BLOOD CHOLESTEROL INCREASED [None]
  - BLOOD URIC ACID INCREASED [None]
  - CHEST PAIN [None]
  - CORONARY ARTERY DISEASE [None]
  - DEHYDRATION [None]
  - DUODENAL ULCER [None]
  - DUODENITIS [None]
  - FATIGUE [None]
  - GASTROOESOPHAGEAL REFLUX DISEASE [None]
  - HYPERLIPIDAEMIA [None]
  - OVERDOSE [None]
  - RENAL FAILURE ACUTE [None]
  - TOE DEFORMITY [None]
  - URINARY TRACT INFECTION [None]
  - VENTRICULAR HYPERTROPHY [None]
